FAERS Safety Report 13732466 (Version 2)
Quarter: 2017Q4

REPORT INFORMATION
  Report Type: Spontaneous
  Country: US (occurrence: US)
  Receive Date: 20170707
  Receipt Date: 20171010
  Transmission Date: 20180320
  Serious: No
  Sender: FDA-Public Use
  Company Number: US-SA-2017SA117441

PATIENT
  Age: 72 Year
  Sex: Female
  Weight: 58.96 kg

DRUGS (6)
  1. TRIAMCINOLONE [Concomitant]
     Active Substance: TRIAMCINOLONE
     Indication: ECZEMA
     Dosage: TWO TIMES IN A WEEK
     Route: 065
  2. SYMBICORT [Concomitant]
     Active Substance: BUDESONIDE\FORMOTEROL FUMARATE DIHYDRATE
     Route: 065
  3. CRISABOROLE [Concomitant]
     Active Substance: CRISABOROLE
     Indication: ECZEMA
     Route: 065
  4. DUPIXENT [Suspect]
     Active Substance: DUPILUMAB
     Indication: ECZEMA
     Dosage: DOSE:150 MILLIGRAM(S)/MILLILITRE
     Route: 065
     Dates: start: 201705
  5. DOXYCYCLINE. [Concomitant]
     Active Substance: DOXYCYCLINE
     Indication: HIP ARTHROPLASTY
     Route: 065
     Dates: start: 201607
  6. GABAPENTIN. [Concomitant]
     Active Substance: GABAPENTIN
     Indication: ECZEMA
     Route: 065

REACTIONS (7)
  - Pruritus [Not Recovered/Not Resolved]
  - Nasal discomfort [Not Recovered/Not Resolved]
  - Pruritus [Not Recovered/Not Resolved]
  - Skin exfoliation [Not Recovered/Not Resolved]
  - Eye pruritus [Not Recovered/Not Resolved]
  - Lacrimation increased [Not Recovered/Not Resolved]
  - Contusion [Not Recovered/Not Resolved]

NARRATIVE: CASE EVENT DATE: 2017
